FAERS Safety Report 5891562-6 (Version None)
Quarter: 2008Q3

REPORT INFORMATION
  Report Type: 
  Country: None (occurrence: None)
  Receive Date: 20080922
  Receipt Date: 20050905
  Transmission Date: 20090109
  Serious: Yes (Hospitalization)
  Sender: FDA-Public Use
  Company Number: IT-ROCHE-571007

PATIENT
  Sex: Female
  Weight: 66 kg

DRUGS (2)
  1. PEGASYS [Suspect]
     Dosage: DOSE AND STRENGTH REPORTED AS 180.
     Route: 065
     Dates: start: 20050207, end: 20070326
  2. RIBAVIRIN [Suspect]
     Dosage: DOSE REPORTED AS 1000.
     Route: 065
     Dates: start: 20050207, end: 20070326

REACTIONS (3)
  - CONCUSSION [None]
  - SKULL FRACTURE [None]
  - SYNCOPE [None]
